FAERS Safety Report 13922084 (Version 1)
Quarter: 2017Q3

REPORT INFORMATION
  Report Type: Spontaneous
  Country: US (occurrence: US)
  Receive Date: 20170830
  Receipt Date: 20170830
  Transmission Date: 20171127
  Serious: Yes (Other)
  Sender: FDA-Public Use
  Company Number: US-TARO-2016TAR00995

PATIENT
  Sex: Male
  Weight: 79 kg

DRUGS (6)
  1. UNSPECIFIED BLOOD PRESSURE MEDICINE [Concomitant]
     Active Substance: UNSPECIFIED INGREDIENT
  2. UNSPECIFIED CHOLESTEROL MEDICINE [Concomitant]
  3. UNSPECIFIED DIABETES MEDICINE [Concomitant]
  4. WARFARIN SODIUM TABLETS USP 5MG [Suspect]
     Active Substance: WARFARIN SODIUM
     Indication: THROMBOSIS PROPHYLAXIS
     Dosage: 1.5 TABLETS, 2X/WEEK (SA + SU)
     Route: 048
  5. UNSPECIFIED PROSTATE MEDICINE [Concomitant]
  6. WARFARIN SODIUM TABLETS USP 5MG [Suspect]
     Active Substance: WARFARIN SODIUM
     Indication: CARDIAC DISORDER
     Dosage: 1 TABLETS, 5X/WEEK (M-F)
     Route: 048
     Dates: start: 2011

REACTIONS (2)
  - Eye haemorrhage [Recovered/Resolved]
  - Blood urine present [Recovered/Resolved]

NARRATIVE: CASE EVENT DATE: 2014
